FAERS Safety Report 9610394 (Version 1)
Quarter: 2013Q4

REPORT INFORMATION
  Report Type: Spontaneous
  Country: US (occurrence: US)
  Receive Date: 20131009
  Receipt Date: 20131009
  Transmission Date: 20140711
  Serious: No
  Sender: FDA-Public Use
  Company Number: US-PFIZER INC-2013286667

PATIENT
  Sex: Female

DRUGS (2)
  1. ATORVASTATIN CALCIUM [Suspect]
     Indication: HYPERLIPIDAEMIA
     Dosage: 10 MG, DAILY
     Dates: start: 2013, end: 2013
  2. ATORVASTATIN CALCIUM [Suspect]
     Dosage: 40 MG, DAILY
     Dates: start: 2013

REACTIONS (1)
  - Paraesthesia [Unknown]
